FAERS Safety Report 13115088 (Version 1)
Quarter: 2017Q1

REPORT INFORMATION
  Report Type: Spontaneous
  Country: US (occurrence: US)
  Receive Date: 20170113
  Receipt Date: 20170113
  Transmission Date: 20170428
  Serious: Yes (Other)
  Sender: FDA-Public Use
  Company Number: US-SA-2017SA003351

PATIENT
  Age: 81 Year
  Sex: Female

DRUGS (1)
  1. ALLEGRA D-12 HOUR [Suspect]
     Active Substance: FEXOFENADINE HYDROCHLORIDE\PSEUDOEPHEDRINE HYDROCHLORIDE
     Indication: SINUS CONGESTION
     Dosage: TWICE A DAY AS NEEDED DOSE:1 UNIT(S)
     Route: 065
     Dates: start: 20161005, end: 20161008

REACTIONS (2)
  - Haemorrhagic diathesis [Not Recovered/Not Resolved]
  - Condition aggravated [Not Recovered/Not Resolved]
